FAERS Safety Report 9169352 (Version 5)
Quarter: 2014Q1

REPORT INFORMATION
  Report Type: Spontaneous
  Country: US (occurrence: US)
  Receive Date: 20130318
  Receipt Date: 20140304
  Transmission Date: 20141002
  Serious: Yes (Hospitalization, Other)
  Sender: FDA-Public Use
  Company Number: US-009507513-1303USA007536

PATIENT
  Sex: Female
  Weight: 61.68 kg

DRUGS (3)
  1. FOSAMAX [Suspect]
     Indication: OSTEOPOROSIS
     Dosage: 70 MG, QW
     Route: 048
     Dates: end: 20120731
  2. FOSAMAX [Suspect]
     Indication: OSTEOPENIA
  3. ALENDRONATE SODIUM [Suspect]
     Dosage: 70 MG, QW
     Route: 048
     Dates: start: 200802, end: 20120731

REACTIONS (22)
  - Open reduction of fracture [Unknown]
  - Breast cancer [Unknown]
  - Mastectomy [Unknown]
  - Hypoacusis [Unknown]
  - Femur fracture [Unknown]
  - Low turnover osteopathy [Unknown]
  - Hypertension [Unknown]
  - Dyslipidaemia [Unknown]
  - Hysterectomy [Unknown]
  - Vitamin D decreased [Unknown]
  - Cardiac murmur [Unknown]
  - Wrist fracture [Unknown]
  - Injury [Unknown]
  - Body height decreased [Unknown]
  - Scoliosis [Unknown]
  - Spinal osteoarthritis [Unknown]
  - Foot fracture [Unknown]
  - Osteoarthritis [Unknown]
  - Osteoarthritis [Not Recovered/Not Resolved]
  - Leukocytosis [Recovered/Resolved]
  - Arthritis [Unknown]
  - Pain in extremity [Unknown]
